FAERS Safety Report 6823198-4 (Version None)
Quarter: 2010Q3

REPORT INFORMATION
  Report Type: 
  Country: None (occurrence: None)
  Receive Date: 20100702
  Receipt Date: 20100622
  Transmission Date: 20110219
  Serious: Yes (Life-Threatening, Hospitalization)
  Sender: FDA-Public Use
  Company Number: 2010EN000199

PATIENT
  Age: 1 Month
  Sex: Female
  Weight: 1.47 kg

DRUGS (5)
  1. ABELCET [Suspect]
     Indication: FUNGAL INFECTION
     Dosage: 5 MG/KG; QD; IV
     Route: 042
     Dates: start: 20100330, end: 20100419
  2. MEROPENEM [Suspect]
     Indication: SEPSIS
     Dosage: 30 MG; TID; IV
     Route: 042
     Dates: start: 20100325, end: 20100408
  3. TARGOCID [Suspect]
     Indication: SEPSIS
     Dosage: 8 MG; QD; IV
     Route: 042
     Dates: start: 20100325, end: 20100408
  4. PERFALGAN (PARACETAMOL) [Suspect]
     Indication: PNEUMONIA
     Dosage: 7.5 MG; TID; IV
     Route: 042
     Dates: start: 20100227
  5. PARENTERAL [Concomitant]

REACTIONS (4)
  - GAMMA-GLUTAMYLTRANSFERASE INCREASED [None]
  - HAEMORRHAGE INTRACRANIAL [None]
  - HAEMORRHAGIC DIATHESIS [None]
  - THROMBOCYTOPENIA [None]
